FAERS Safety Report 18025825 (Version 1)
Quarter: 2020Q3

REPORT INFORMATION
  Report Type: Spontaneous
  Country: US (occurrence: US)
  Receive Date: 20200715
  Receipt Date: 20200715
  Transmission Date: 20201103
  Serious: No
  Sender: FDA-Public Use
  Company Number: US-FERRINGPH-2019FE06496

PATIENT
  Age: 45 Year
  Sex: Male

DRUGS (3)
  1. ZOMACTON [Suspect]
     Active Substance: SOMATROPIN
     Indication: LIPID METABOLISM DISORDER
  2. ZOMACTON [Suspect]
     Active Substance: SOMATROPIN
     Indication: MUSCULOSKELETAL PAIN
  3. ZOMACTON [Suspect]
     Active Substance: SOMATROPIN
     Indication: ASTHENIA
     Dosage: UNK
     Route: 065
     Dates: start: 2019

REACTIONS (2)
  - Product use in unapproved indication [Not Recovered/Not Resolved]
  - Blood growth hormone decreased [Not Recovered/Not Resolved]

NARRATIVE: CASE EVENT DATE: 2019
